FAERS Safety Report 5952857-0 (Version None)
Quarter: 2008Q4

REPORT INFORMATION
  Report Type: 
  Country: None (occurrence: None)
  Receive Date: 20081114
  Receipt Date: 20081110
  Transmission Date: 20090506
  Serious: Yes (Hospitalization)
  Sender: FDA-Public Use
  Company Number: US-BRISTOL-MYERS SQUIBB COMPANY-14400717

PATIENT
  Age: 35 Year
  Sex: Female

DRUGS (14)
  1. HEPARIN SODIUM [Suspect]
     Indication: THROMBOSIS PROPHYLAXIS
     Route: 058
  2. LISINOPRIL [Suspect]
     Route: 048
  3. MORPHINE SULFATE INJ [Suspect]
     Indication: PAIN
     Dosage: 1-2 MILLIGRAM EVERY 1-2 HOURS AS NEEDED.
     Route: 042
  4. WARFARIN SODIUM [Suspect]
  5. POTASSIUM CHLORIDE [Suspect]
     Route: 048
  6. METOPROLOL TARTRATE [Suspect]
     Route: 048
  7. FUROSEMIDE [Suspect]
     Route: 048
  8. DIGOXIN [Suspect]
  9. ASPIRIN [Suspect]
  10. LANSOPRAZOLE [Suspect]
     Indication: PROPHYLAXIS
  11. DOCUSATE SODIUM [Suspect]
  12. HYDROCODONE BITARTRATE + ACETAMINOPHEN [Suspect]
     Indication: PAIN
     Dosage: HYDROCODONE 5 TO 10 MG PLUS ACETAMINOPHEN 500-1000MG EVERY 4 TO 6 HOURS.
  13. ONDANSETRON [Suspect]
     Indication: NAUSEA
  14. ONDANSETRON [Suspect]
     Indication: VOMITING

REACTIONS (8)
  - ACUTE MYOCARDIAL INFARCTION [None]
  - HEPATIC INFARCTION [None]
  - INTRACARDIAC THROMBUS [None]
  - ISCHAEMIC STROKE [None]
  - PULMONARY EMBOLISM [None]
  - RENAL INFARCT [None]
  - SPLENIC INFARCTION [None]
  - THROMBOSIS [None]
